FAERS Safety Report 11080264 (Version 2)
Quarter: 2015Q2

REPORT INFORMATION
  Report Type: Report from Study
  Country: US (occurrence: US)
  Receive Date: 20150430
  Receipt Date: 20150612
  Transmission Date: 20150821
  Serious: Yes (Other)
  Sender: FDA-Public Use
  Company Number: US-009507513-1504USA021596

PATIENT

DRUGS (6)
  1. AZATHIOPRINE. [Concomitant]
     Active Substance: AZATHIOPRINE
     Dosage: 2 MG/KG, QD
  2. CYCLOPHOSPHAMIDE. [Concomitant]
     Active Substance: CYCLOPHOSPHAMIDE
     Dosage: 2 MG/KG, QD, FOR 3-6 MONTHS
  3. MYCOPHENOLATE MOFETIL. [Concomitant]
     Active Substance: MYCOPHENOLATE MOFETIL
     Dosage: 1 G, BID
  4. RITUXIMAB [Concomitant]
     Active Substance: RITUXIMAB
     Dosage: 1 G, ON DAY 1 AND 15 (1 COURSE) OR 375 MG/M2 IV WEEKLY FOR 4 WEEKS (1 COURSE).
     Route: 042
  5. METHYLPREDNISOLONE SODIUM SUCCINATE. [Suspect]
     Active Substance: METHYLPREDNISOLONE SODIUM SUCCINATE
     Indication: ANTINEUTROPHIL CYTOPLASMIC ANTIBODY
     Dosage: 500 MG, QD
     Route: 042
  6. PREDNISOLONE. [Concomitant]
     Active Substance: PREDNISOLONE
     Dosage: 60 MG, QD, FOR 4 WEEKS FOLLOWED BY A 12 WEEK TAPER
     Route: 048

REACTIONS (1)
  - Infection [Unknown]
